FAERS Safety Report 6201078-5 (Version None)
Quarter: 2009Q2

REPORT INFORMATION
  Report Type: 
  Country: None (occurrence: None)
  Receive Date: 20090526
  Receipt Date: 20090520
  Transmission Date: 20091009
  Serious: Yes (Hospitalization, Other)
  Sender: FDA-Public Use
  Company Number: US-BRISTOL-MYERS SQUIBB COMPANY-14633044

PATIENT
  Age: 76 Year
  Sex: Female
  Weight: 93 kg

DRUGS (7)
  1. COUMADIN [Suspect]
     Indication: DEEP VEIN THROMBOSIS
     Dates: end: 20081101
  2. ENOXAPARIN SODIUM [Suspect]
     Indication: THROMBOSIS PROPHYLAXIS
     Dosage: ENOXAPARIN INJ;INTERRUPTED ON 5NOV08;RESTARTED ON 8NOV-11NOV08;LAST DOSE ON 17NOV08.
     Route: 058
     Dates: start: 20081104, end: 20081117
  3. AVAPRO [Concomitant]
  4. HYDROCHLOROTHIAZIDE [Concomitant]
  5. PREVACID [Concomitant]
  6. COLECALCIFEROL [Concomitant]
  7. CALCIUM + VITAMIN D [Concomitant]

REACTIONS (5)
  - DEEP VEIN THROMBOSIS [None]
  - HAEMATOMA [None]
  - PITTING OEDEMA [None]
  - SKIN NECROSIS [None]
  - WOUND INFECTION [None]
